FAERS Safety Report 8901070 (Version 5)
Quarter: 2013Q3

REPORT INFORMATION
  Report Type: Spontaneous
  Country: US (occurrence: US)
  Receive Date: 20121109
  Receipt Date: 20130725
  Transmission Date: 20140515
  Serious: Yes (Hospitalization, Other)
  Sender: FDA-Public Use
  Company Number: US-MERCK-1211USA000972

PATIENT
  Sex: Female
  Weight: 84.81 kg

DRUGS (3)
  1. FOSAMAX [Suspect]
     Indication: PROPHYLAXIS
     Dosage: 10 MG, QD
     Route: 048
     Dates: start: 20000711
  2. FOSAMAX [Suspect]
     Dosage: 70 MG, UNK
     Route: 048
     Dates: start: 2000, end: 200711
  3. BONIVA [Suspect]
     Indication: PROPHYLAXIS
     Dosage: UNK
     Dates: start: 2008, end: 20081020

REACTIONS (61)
  - Femur fracture [Unknown]
  - Intramedullary rod insertion [Unknown]
  - Anaemia [Unknown]
  - Fracture [Unknown]
  - Breast cancer [Unknown]
  - Adverse event [Unknown]
  - Arthroscopy [Unknown]
  - Osteochondrosis [Unknown]
  - Chest pain [Unknown]
  - Sleep apnoea syndrome [Unknown]
  - Oesophageal spasm [Unknown]
  - Stress [Unknown]
  - Hyperlipidaemia [Unknown]
  - Medical device removal [Unknown]
  - Osteoarthritis [Unknown]
  - Peripheral nerve transposition [Unknown]
  - Ankle arthroplasty [Unknown]
  - Medical device removal [Not Recovered/Not Resolved]
  - Angiocentric lymphoma stage II [Unknown]
  - Mastectomy [Unknown]
  - Dysphagia [Unknown]
  - Blood alkaline phosphatase decreased [Unknown]
  - Low turnover osteopathy [Unknown]
  - Adverse drug reaction [Unknown]
  - Knee arthroplasty [Unknown]
  - Ankle fracture [Unknown]
  - Blister [Unknown]
  - Dermatitis contact [Unknown]
  - Hypercholesterolaemia [Unknown]
  - Hypercalcaemia [Unknown]
  - Joint instability [Unknown]
  - Joint injury [Unknown]
  - Patella fracture [Unknown]
  - Carpal tunnel syndrome [Unknown]
  - Mass excision [Unknown]
  - Nodule [Unknown]
  - Hysterectomy [Unknown]
  - Breast lump removal [Unknown]
  - Melanosis [Unknown]
  - Cataract [Unknown]
  - Cataract [Unknown]
  - Osteoarthritis [Unknown]
  - Ankle fracture [Unknown]
  - Vitamin D deficiency [Not Recovered/Not Resolved]
  - Hypertension [Not Recovered/Not Resolved]
  - Blood cholesterol increased [Not Recovered/Not Resolved]
  - Osteoarthritis [Unknown]
  - Hypothyroidism [Not Recovered/Not Resolved]
  - Ligament sprain [Unknown]
  - Synovitis [Unknown]
  - Ligament rupture [Unknown]
  - Joint dislocation [Not Recovered/Not Resolved]
  - Hot flush [Unknown]
  - Arthritis [Unknown]
  - Arthroscopy [Unknown]
  - Nausea [Unknown]
  - Back pain [Unknown]
  - Oedema peripheral [Unknown]
  - Vomiting [Unknown]
  - Drug hypersensitivity [Unknown]
  - Urticaria [Unknown]
